FAERS Safety Report 7978336-7 (Version None)
Quarter: 2011Q4

REPORT INFORMATION
  Report Type: 
  Country: None (occurrence: None)
  Receive Date: 20111214
  Receipt Date: 20111209
  Transmission Date: 20120403
  Serious: Yes (Hospitalization)
  Sender: FDA-Public Use
  Company Number: FR-B.I. PHARMACEUTICALS,INC./RIDGEFIELD-2011-FF-01135FF

PATIENT
  Sex: Female
  Weight: 47 kg

DRUGS (2)
  1. PRADAXA [Suspect]
     Indication: CARDIAC FAILURE
  2. PRADAXA [Suspect]
     Indication: ATRIAL FIBRILLATION
     Dosage: 220 MG
     Route: 048
     Dates: start: 20111107, end: 20111113

REACTIONS (4)
  - HAEMARTHROSIS [None]
  - FALL [None]
  - HEAD INJURY [None]
  - JOINT SWELLING [None]
